FAERS Safety Report 17237834 (Version 1)
Quarter: 2020Q1

REPORT INFORMATION
  Report Type: Report from Study
  Country: NL (occurrence: NL)
  Receive Date: 20200106
  Receipt Date: 20200106
  Transmission Date: 20200409
  Serious: Yes (Other)
  Sender: FDA-Public Use
  Company Number: NL-MYLANLABS-2020M1001273

PATIENT
  Age: 47 Year
  Sex: Female
  Weight: 70 kg

DRUGS (7)
  1. ROPINIROLE SANDOZ [Suspect]
     Active Substance: ROPINIROLE
     Indication: PRODUCT USED FOR UNKNOWN INDICATION
     Dosage: 4 MILLIGRAM, QD
     Route: 065
     Dates: start: 201906
  2. ROPINIROL                          /01242901/ [Concomitant]
     Indication: PRODUCT USED FOR UNKNOWN INDICATION
     Dosage: 1 DOSAGE FORM, QD
     Route: 048
  3. PREGABALINE [Concomitant]
     Active Substance: PREGABALIN
     Dosage: 1 DOSAGE FORM, BID (1 CAPSULE AS NECESSARY)
     Route: 048
  4. GLATIRAMEERACETAAT MYLAN 40 MG/ML [Suspect]
     Active Substance: GLATIRAMER ACETATE
     Indication: MULTIPLE SCLEROSIS
     Dosage: 40 MILLIGRAM, 3XW
     Route: 058
     Dates: start: 20190226, end: 20190916
  5. LEVONORGESTREL AND ETHINYL ESTRADIOL [Concomitant]
     Active Substance: ETHINYL ESTRADIOL\LEVONORGESTREL
     Dosage: 1 DOSAGE FORM, QD FOR 3 WEEKS- 1 WEEK STOP
     Route: 048
  6. PREGABALINE [Concomitant]
     Active Substance: PREGABALIN
     Dosage: 150 MG, BID (STRENGTH: 150 MG)
     Route: 048
  7. AMANTADINE. [Concomitant]
     Active Substance: AMANTADINE HYDROCHLORIDE
     Dosage: 1 DOSAGE FORM, QD
     Route: 048

REACTIONS (5)
  - Back pain [Not Recovered/Not Resolved]
  - Syncope [Not Recovered/Not Resolved]
  - Urinary retention [Not Recovered/Not Resolved]
  - Arthralgia [Not Recovered/Not Resolved]
  - Anxiety [Not Recovered/Not Resolved]

NARRATIVE: CASE EVENT DATE: 2019
